FAERS Safety Report 6082812-4 (Version None)
Quarter: 2009Q1

REPORT INFORMATION
  Report Type: 
  Country: None (occurrence: None)
  Receive Date: 20090218
  Receipt Date: 20090204
  Transmission Date: 20090719
  Serious: Yes (Death, Other)
  Sender: FDA-Public Use
  Company Number: JP-AVENTIS-200910269JP

PATIENT
  Sex: Male

DRUGS (7)
  1. TAXOTERE [Suspect]
     Route: 041
     Dates: start: 20090120, end: 20090120
  2. PREDNISOLONE [Concomitant]
  3. PREDNISOLONE [Concomitant]
     Dates: start: 20090120, end: 20090128
  4. GLOBULIN [Concomitant]
     Dates: start: 20090129, end: 20090129
  5. UNKNOWN DRUG [Concomitant]
     Dates: start: 20090129, end: 20090129
  6. ESTRAMUSTINE PHOSPHATE [Concomitant]
  7. DEXAMETHASONE TAB [Concomitant]

REACTIONS (2)
  - NEUTROPENIA [None]
  - SUDDEN DEATH [None]
